FAERS Safety Report 14419541 (Version 3)
Quarter: 2018Q1

REPORT INFORMATION
  Report Type: Spontaneous
  Country: DE (occurrence: DE)
  Receive Date: 20180122
  Receipt Date: 20180220
  Transmission Date: 20180509
  Serious: Yes (Hospitalization, Other)
  Sender: FDA-Public Use
  Company Number: DE-PFIZER INC-2018023907

PATIENT
  Age: 63 Year
  Sex: Female

DRUGS (1)
  1. FENTANYL. [Suspect]
     Active Substance: FENTANYL
     Indication: PAIN
     Dosage: 50?G AND 25?G
     Route: 062
     Dates: start: 20171201, end: 20171218

REACTIONS (3)
  - Overdose [Unknown]
  - Dyspnoea [Unknown]
  - Respiratory depression [Unknown]

NARRATIVE: CASE EVENT DATE: 20171201
